FAERS Safety Report 10997496 (Version 5)
Quarter: 2017Q2

REPORT INFORMATION
  Report Type: Spontaneous
  Country: US (occurrence: US)
  Receive Date: 20150408
  Receipt Date: 20170516
  Transmission Date: 20170829
  Serious: No
  Sender: FDA-Public Use
  Company Number: US-BRISTOL-MYERS SQUIBB COMPANY-BMS-2014-007774

PATIENT

DRUGS (3)
  1. ABILIFY [Suspect]
     Active Substance: ARIPIPRAZOLE
     Indication: DEPRESSION
     Dosage: 5 MG, UNK
     Route: 065
     Dates: start: 20090424, end: 20140331
  2. ABILIFY [Suspect]
     Active Substance: ARIPIPRAZOLE
     Indication: SCHIZOPHRENIA
     Route: 065
  3. ABILIFY [Suspect]
     Active Substance: ARIPIPRAZOLE
     Indication: BIPOLAR I DISORDER
     Route: 065

REACTIONS (6)
  - Obsessive-compulsive disorder [Recovered/Resolved]
  - Pain [Unknown]
  - Gambling disorder [Recovered/Resolved]
  - Compulsive shopping [Recovered/Resolved]
  - Anxiety [Unknown]
  - Eating disorder [Recovered/Resolved]
